FAERS Safety Report 5630384-8 (Version None)
Quarter: 2008Q1

REPORT INFORMATION
  Report Type: 
  Country: None (occurrence: None)
  Receive Date: 20080219
  Receipt Date: 20080215
  Transmission Date: 20080703
  Serious: Yes (Hospitalization)
  Sender: FDA-Public Use
  Company Number: PHNU2007DE03800

PATIENT
  Age: 47 Year
  Sex: Male

DRUGS (2)
  1. LEPONEX [Suspect]
     Indication: SCHIZOPHRENIA, PARANOID TYPE
     Dosage: 150 MG/DAY
     Route: 048
     Dates: start: 20070814
  2. AMISULPRIDE [Concomitant]
     Dosage: 600 MG/DAY
     Dates: start: 20070612

REACTIONS (3)
  - FATIGUE [None]
  - SLEEP APNOEA SYNDROME [None]
  - WEIGHT INCREASED [None]
